FAERS Safety Report 23040403 (Version 1)
Quarter: 2023Q4

REPORT INFORMATION
  Report Type: Spontaneous
  Country: CN (occurrence: None)
  Receive Date: 20231006
  Receipt Date: 20231006
  Transmission Date: 20240109
  Serious: Yes (Other)
  Sender: FDA-Public Use
  Company Number: 2023A224043

PATIENT
  Age: 24157 Day
  Sex: Female

DRUGS (2)
  1. TAGRISSO [Suspect]
     Active Substance: OSIMERTINIB
     Indication: Pulmonary mass
     Route: 048
     Dates: start: 20230904, end: 20230906
  2. QIENUO [Concomitant]
     Indication: Pulmonary mass
     Route: 048
     Dates: start: 20230904, end: 20230905

REACTIONS (1)
  - Immune-mediated lung disease [Recovering/Resolving]

NARRATIVE: CASE EVENT DATE: 20230920
